FAERS Safety Report 7945919-X (Version None)
Quarter: 2011Q4

REPORT INFORMATION
  Report Type: 
  Country: None (occurrence: None)
  Receive Date: 20111125
  Receipt Date: 20111117
  Transmission Date: 20120403
  Serious: Yes (Life-Threatening, Hospitalization, Other)
  Sender: FDA-Public Use
  Company Number: 2011MA016571

PATIENT
  Age: 31 Year
  Sex: Female

DRUGS (4)
  1. LIDOCAINE [Suspect]
     Indication: ANALGESIC THERAPY
     Dosage: 1X; INTERSPINAL
  2. ROPIVACAINE HYDROCHLORIDE [Suspect]
     Indication: ANALGESIC THERAPY
     Dosage: ;1X;EPIDURAL
     Route: 008
  3. FENTANYL [Suspect]
     Indication: ANALGESIC THERAPY
     Dosage: 2 MG/ML;1X;EPIDURAL
     Route: 008
  4. BUPIVACAINE HCL [Suspect]
     Indication: ANALGESIC THERAPY
     Dosage: 11 MG;IX;EPIDURAL
     Route: 008

REACTIONS (9)
  - BACK PAIN [None]
  - WOUND INFECTION STAPHYLOCOCCAL [None]
  - BACTERIAL INFECTION [None]
  - DEVICE RELATED INFECTION [None]
  - CAESAREAN SECTION [None]
  - PAPULE [None]
  - IATROGENIC INFECTION [None]
  - PURULENT DISCHARGE [None]
  - ERYTHEMA [None]
